FAERS Safety Report 8487914-0 (Version None)
Quarter: 2012Q3

REPORT INFORMATION
  Report Type: 
  Country: None (occurrence: None)
  Receive Date: 20120705
  Receipt Date: 20120622
  Transmission Date: 20120928
  Serious: Yes (Other)
  Sender: FDA-Public Use
  Company Number: JP-PFIZER INC-2012159119

PATIENT
  Age: 74 Year
  Sex: Female

DRUGS (1)
  1. LIPITOR [Suspect]
     Dosage: 5 MG, UNK
     Route: 048
     Dates: start: 20101201, end: 20110101

REACTIONS (2)
  - THROMBOCYTOPENIA [None]
  - LEUKOPENIA [None]
